FAERS Safety Report 21954115 (Version 1)
Quarter: 2023Q1

REPORT INFORMATION
  Report Type: Report from Study
  Country: US (occurrence: US)
  Receive Date: 20230204
  Receipt Date: 20230204
  Transmission Date: 20230418
  Serious: No
  Sender: FDA-Public Use
  Company Number: US-ACORDA-ACO_174220_2022

PATIENT
  Age: 59 Year
  Sex: Female

DRUGS (2)
  1. AMPYRA [Suspect]
     Active Substance: DALFAMPRIDINE
     Indication: Multiple sclerosis
     Dosage: 10 MILLIGRAM, Q 12 HRS
     Route: 048
  2. DALFAMPRIDINE [Suspect]
     Active Substance: DALFAMPRIDINE
     Indication: Multiple sclerosis
     Dosage: 10 MILLIGRAM, Q 12 HRS
     Route: 065

REACTIONS (10)
  - Coagulopathy [Unknown]
  - Drug intolerance [Unknown]
  - Intentional underdose [Unknown]
  - Neuropathy peripheral [Not Recovered/Not Resolved]
  - Intentional underdose [Unknown]
  - Fatigue [Unknown]
  - Drug ineffective [Unknown]
  - Adverse drug reaction [Recovered/Resolved]
  - Insomnia [Unknown]
  - Paraesthesia [Not Recovered/Not Resolved]

NARRATIVE: CASE EVENT DATE: 20230110
